FAERS Safety Report 7370128 (Version 10)
Quarter: 2014Q4

REPORT INFORMATION
  Report Type: Report from Study
  Country: CA (occurrence: CA)
  Receive Date: 20100429
  Receipt Date: 20141223
  Transmission Date: 20150529
  Serious: Yes (Other)
  Sender: FDA-Public Use
  Company Number: PHHY2010CA11122

PATIENT
  Sex: Female
  Weight: 59.41 kg

DRUGS (1)
  1. SANDOSTATIN LAR DEPOT [Suspect]
     Active Substance: OCTREOTIDE ACETATE
     Indication: NEUROENDOCRINE CARCINOMA
     Dosage: 30 MG, EVERY 4 WEEKS
     Route: 030
     Dates: start: 20100420

REACTIONS (16)
  - Joint swelling [Unknown]
  - Night sweats [Unknown]
  - Nasopharyngitis [Unknown]
  - Chills [Recovered/Resolved]
  - Feeling abnormal [Unknown]
  - Back pain [Unknown]
  - Swelling [Unknown]
  - Blood glucose increased [Unknown]
  - Weight decreased [Unknown]
  - Osteoarthritis [Unknown]
  - Fatigue [Unknown]
  - Renal cyst [Unknown]
  - Influenza [Unknown]
  - Bronchitis [Unknown]
  - Arthritis [Unknown]
  - Pain [Unknown]
